FAERS Safety Report 14160706 (Version 1)
Quarter: 2017Q4

REPORT INFORMATION
  Report Type: Spontaneous
  Country: GB (occurrence: GB)
  Receive Date: 20171106
  Receipt Date: 20171106
  Transmission Date: 20180321
  Serious: Yes (Hospitalization)
  Sender: FDA-Public Use
  Company Number: GB-CONCORDIA PHARMACEUTICALS INC.-GSH201510-015093

PATIENT
  Age: 85 Year
  Sex: Male

DRUGS (6)
  1. BISOPROLOL [Concomitant]
     Active Substance: BISOPROLOL
  2. OMEPRAZOLE. [Concomitant]
     Active Substance: OMEPRAZOLE
     Dosage: REDUCED FROM 40MG TO 20MG ON 07/09/15
  3. LISINOPRIL. [Concomitant]
     Active Substance: LISINOPRIL
  4. PREDNISOLONE. [Suspect]
     Active Substance: PREDNISOLONE
     Indication: AUTOIMMUNE HAEMOLYTIC ANAEMIA
     Route: 048
     Dates: start: 20150729, end: 20150807
  5. ATENOLOL. [Concomitant]
     Active Substance: ATENOLOL
     Route: 048
  6. PREDNISOLONE. [Suspect]
     Active Substance: PREDNISOLONE
     Indication: AUTOIMMUNE HAEMOLYTIC ANAEMIA
     Dosage: HAD BEEN PRESCRIBED 50MG ONCE A DAY.
     Route: 048

REACTIONS (4)
  - Lower respiratory tract infection [Unknown]
  - Hallucination [Unknown]
  - Delirium [Not Recovered/Not Resolved]
  - Accidental overdose [Unknown]
